FAERS Safety Report 8208130-3 (Version None)
Quarter: 2012Q1

REPORT INFORMATION
  Report Type: 
  Country: None (occurrence: None)
  Receive Date: 20120314
  Receipt Date: 20120307
  Transmission Date: 20120608
  Serious: Yes (Hospitalization)
  Sender: FDA-Public Use
  Company Number: PHHO2010DE12207

PATIENT
  Sex: Male
  Weight: 87 kg

DRUGS (6)
  1. TACROLIMUS [Suspect]
     Dosage: UNK
     Route: 048
     Dates: end: 20100329
  2. EVEROLIMUS [Suspect]
     Indication: LIVER TRANSPLANT
     Dosage: 1 MG, BID
     Dates: start: 20100413, end: 20100422
  3. TACROLIMUS [Suspect]
     Indication: LIVER TRANSPLANT
     Dosage: 3.5 MG, BID
     Route: 048
     Dates: start: 20100318
  4. TACROLIMUS [Suspect]
     Dosage: 5.5 MG, DAILY
     Route: 048
     Dates: start: 20100320
  5. TACROLIMUS [Suspect]
     Dosage: 2.5 MG, BID
     Route: 048
     Dates: start: 20100325, end: 20100326
  6. TACROLIMUS [Suspect]
     Dosage: 2 MG, BID
     Route: 048
     Dates: start: 20100321, end: 20100324

REACTIONS (2)
  - SEPTIC SHOCK [None]
  - PNEUMONIA [None]
